FAERS Safety Report 20902481 (Version 1)
Quarter: 2022Q2

REPORT INFORMATION
  Report Type: Spontaneous
  Country: US (occurrence: US)
  Receive Date: 20220601
  Receipt Date: 20220601
  Transmission Date: 20220721
  Serious: Yes (Other)
  Sender: FDA-Public Use
  Company Number: US-ALLERGAN-2217187US

PATIENT
  Sex: Female
  Weight: 60.3 kg

DRUGS (7)
  1. OFLOXACIN [Suspect]
     Active Substance: OFLOXACIN
     Indication: Cataract operation
     Dosage: UNK UNK, QD
     Dates: start: 20220314
  2. INVELTYS [Suspect]
     Active Substance: LOTEPREDNOL ETABONATE
     Indication: Cataract operation
     Dosage: 1 GTT, QD
     Route: 047
  3. INVELTYS [Suspect]
     Active Substance: LOTEPREDNOL ETABONATE
     Dosage: UNK, BID
     Route: 047
  4. INVELTYS [Suspect]
     Active Substance: LOTEPREDNOL ETABONATE
     Dosage: UNK, TID
     Route: 047
     Dates: start: 202203
  5. UNSPECIFIED INGREDIENT [Suspect]
     Active Substance: UNSPECIFIED INGREDIENT
     Indication: Cataract operation
     Dosage: UNK
     Dates: start: 20220315, end: 20220315
  6. BROMELAINS [Suspect]
     Active Substance: BROMELAINS
     Indication: Cataract operation
     Dosage: UNK, TID
     Dates: start: 202203
  7. COVID-19 VACCINE NOS [Suspect]
     Active Substance: COVID-19 VACCINE NOS
     Indication: COVID-19 screening
     Dosage: UNK

REACTIONS (8)
  - Trigeminal neuropathy [Unknown]
  - Vitreous floaters [Unknown]
  - Musculoskeletal discomfort [Unknown]
  - Swelling face [Unknown]
  - Inflammation [Unknown]
  - Dry eye [Unknown]
  - Vision blurred [Unknown]
  - Eye swelling [Unknown]

NARRATIVE: CASE EVENT DATE: 20220301
